FAERS Safety Report 7672504-X (Version None)
Quarter: 2011Q3

REPORT INFORMATION
  Report Type: 
  Country: None (occurrence: None)
  Receive Date: 20110809
  Receipt Date: 20110804
  Transmission Date: 20111222
  Serious: Yes (Other)
  Sender: FDA-Public Use
  Company Number: JP-PFIZER INC-2011179021

PATIENT
  Age: 90 Year
  Sex: Female

DRUGS (8)
  1. LYRICA [Suspect]
     Dosage: 150 MG DAILY
     Dates: start: 20110802
  2. LOXONIN [Suspect]
     Dosage: UNK
     Dates: start: 20110604, end: 20110621
  3. KETOPROFEN [Concomitant]
     Dosage: UNK
  4. REBAMIPIDE [Suspect]
     Dosage: UNK
     Dates: start: 20110621
  5. CELECOXIB [Suspect]
     Dosage: 100 MG, 2X/DAY (MORNING AND EVENING)
     Route: 048
     Dates: start: 20110621
  6. MUCOSTA [Suspect]
     Dosage: UNK
     Dates: start: 20110604, end: 20110621
  7. ALENDRONATE SODIUM [Concomitant]
     Dosage: UNK
  8. LIMAPROST [Suspect]
     Dosage: UNK
     Dates: end: 20110802

REACTIONS (1)
  - HAEMATOCHEZIA [None]
